FAERS Safety Report 8158138-1 (Version None)
Quarter: 2012Q1

REPORT INFORMATION
  Report Type: 
  Country: None (occurrence: None)
  Receive Date: 20120222
  Receipt Date: 20120213
  Transmission Date: 20120608
  Serious: Yes (Other)
  Sender: FDA-Public Use
  Company Number: PHHY2012US014938

PATIENT
  Sex: Female
  Weight: 2.36 kg

DRUGS (1)
  1. HYDRALAZINE HCL [Suspect]
     Indication: BLOOD PRESSURE
     Dosage: 10 MG/DAY

REACTIONS (3)
  - PREMATURE BABY [None]
  - LOW BIRTH WEIGHT BABY [None]
  - FOETAL EXPOSURE DURING PREGNANCY [None]
